FAERS Safety Report 8617259-7 (Version None)
Quarter: 2012Q3

REPORT INFORMATION
  Report Type: 
  Country: None (occurrence: None)
  Receive Date: 20120823
  Receipt Date: 20120809
  Transmission Date: 20120928
  Serious: No
  Sender: FDA-Public Use
  Company Number: JP-FRI-1000037056

PATIENT
  Sex: Female
  Weight: 50 kg

DRUGS (2)
  1. ESCITALOPRAM [Suspect]
     Indication: DEPRESSED MOOD
     Dosage: 10 MG
     Route: 048
     Dates: start: 20120529, end: 20120605
  2. ESCITALOPRAM [Suspect]
     Indication: DEPRESSION

REACTIONS (1)
  - ACTIVATION SYNDROME [None]
